FAERS Safety Report 18407269 (Version 1)
Quarter: 2020Q4

REPORT INFORMATION
  Report Type: Report from Study
  Country: IN (occurrence: IN)
  Receive Date: 20201020
  Receipt Date: 20201020
  Transmission Date: 20210114
  Serious: Yes (Other)
  Sender: FDA-Public Use
  Company Number: PHHY2019IN141021

PATIENT
  Age: 37 Year
  Sex: Female

DRUGS (10)
  1. REVOLADE [Suspect]
     Active Substance: ELTROMBOPAG
     Indication: IMMUNE THROMBOCYTOPENIA
     Dosage: 50 MG, QD
     Route: 048
     Dates: start: 20180629, end: 20181223
  2. REVOLADE [Suspect]
     Active Substance: ELTROMBOPAG
     Dosage: 50 MG, QD
     Route: 048
     Dates: start: 20190208, end: 20190330
  3. REVOLADE [Suspect]
     Active Substance: ELTROMBOPAG
     Dosage: 75 MG, QD
     Route: 048
     Dates: start: 20190331, end: 20200410
  4. REVOLADE [Suspect]
     Active Substance: ELTROMBOPAG
     Dosage: 75 MG, QD
     Route: 048
     Dates: start: 20200707, end: 20200820
  5. REVOLADE [Suspect]
     Active Substance: ELTROMBOPAG
     Dosage: 75 MG, QD
     Route: 048
     Dates: start: 20200923
  6. REVOLADE [Suspect]
     Active Substance: ELTROMBOPAG
     Dosage: UNK
     Route: 048
     Dates: start: 20200411, end: 20200706
  7. REVOLADE [Suspect]
     Active Substance: ELTROMBOPAG
     Dosage: 75 MG, QD
     Route: 048
     Dates: start: 20181224, end: 20190207
  8. REVOLADE [Suspect]
     Active Substance: ELTROMBOPAG
     Dosage: 2 DF, QD (PATIENT CONSUMED TWO TABLETS OF 25 MG FOR THE DOSAGE OF 50 MG OD)
     Route: 048
     Dates: start: 20190223, end: 20190301
  9. REVOLADE [Suspect]
     Active Substance: ELTROMBOPAG
     Dosage: 100 MG, QD
     Route: 048
     Dates: start: 20200821, end: 20200922
  10. REVOLADE [Suspect]
     Active Substance: ELTROMBOPAG
     Dosage: 1.5 DF, QD (PATIENT CONSUMED ONE AND HALF TABLET OF 50 MG FOR THE DOSAGE OF 75 MG OD)
     Route: 048
     Dates: start: 20181224, end: 20181227

REACTIONS (4)
  - Platelet count decreased [Recovered/Resolved]
  - Ecchymosis [Recovered/Resolved]
  - Menorrhagia [Recovered/Resolved]
  - Wrong technique in product usage process [Unknown]

NARRATIVE: CASE EVENT DATE: 20181224
